FAERS Safety Report 15301422 (Version 1)
Quarter: 2018Q3

REPORT INFORMATION
  Report Type: Spontaneous
  Country: US (occurrence: US)
  Receive Date: 20180809
  Receipt Date: 20180809
  Transmission Date: 20181010
  Serious: Yes (Hospitalization, Other)
  Sender: FDA-Public Use
  Company Number: None

PATIENT
  Age: 35 Year
  Sex: Female
  Weight: 45 kg

DRUGS (2)
  1. ADDERALLXR [Concomitant]
  2. CLINDAMYCIN. [Suspect]
     Active Substance: CLINDAMYCIN
     Indication: INFECTION
     Dosage: ?          QUANTITY:23 CAPSULE(S);?
     Route: 048
     Dates: start: 20180721, end: 20180724

REACTIONS (9)
  - Fatigue [None]
  - Nausea [None]
  - Eructation [None]
  - Vomiting [None]
  - Rash pruritic [None]
  - Drug-induced liver injury [None]
  - Ill-defined disorder [None]
  - Jaundice [None]
  - Decreased appetite [None]

NARRATIVE: CASE EVENT DATE: 20180724
